FAERS Safety Report 7610222-4 (Version None)
Quarter: 2011Q3

REPORT INFORMATION
  Report Type: 
  Country: None (occurrence: None)
  Receive Date: 20110715
  Receipt Date: 20110706
  Transmission Date: 20111222
  Serious: Yes (Other)
  Sender: FDA-Public Use
  Company Number: DK-AMGEN-DNKCT2011019500

PATIENT
  Age: 69 Year
  Sex: Female

DRUGS (5)
  1. ETANERCEPT [Suspect]
     Indication: RHEUMATOID ARTHRITIS
     Dosage: 50 MG, QWK
     Dates: start: 20090318, end: 20100331
  2. HUMIRA [Suspect]
     Indication: RHEUMATOID ARTHRITIS
     Dosage: 40 MG, WEEKLY
     Dates: start: 20100331, end: 20110401
  3. METHOTREXATE [Concomitant]
     Dosage: 20 MG, WEEKLY
     Dates: start: 20090318
  4. SULFASALAZINE [Concomitant]
     Dosage: 1.5 MG, 2X/DAY
     Dates: start: 20090318
  5. PREDNISOLONE [Concomitant]
     Dosage: UNK
     Dates: start: 20090318

REACTIONS (1)
  - METASTASES TO LIVER [None]
